FAERS Safety Report 22299360 (Version 1)
Quarter: 2023Q2

REPORT INFORMATION
  Report Type: Spontaneous
  Country: US (occurrence: None)
  Receive Date: 20230508
  Receipt Date: 20230508
  Transmission Date: 20230721
  Serious: No
  Sender: FDA-Public Use
  Company Number: None

PATIENT
  Sex: Male

DRUGS (1)
  1. ICATIBANT ACETATE [Suspect]
     Active Substance: ICATIBANT ACETATE
     Indication: Complement factor abnormal
     Dosage: FREQUENCY : AS NEEDED;?
     Route: 058
     Dates: start: 20220915

REACTIONS (6)
  - Weight decreased [None]
  - Gastric disorder [None]
  - Swelling [None]
  - Condition aggravated [None]
  - Unevaluable event [None]
  - Precancerous lesion of digestive tract [None]
